FAERS Safety Report 13579159 (Version 1)
Quarter: 2017Q2

REPORT INFORMATION
  Report Type: Spontaneous
  Country: US (occurrence: US)
  Receive Date: 20170524
  Receipt Date: 20170524
  Transmission Date: 20170830
  Serious: No
  Sender: FDA-Public Use
  Company Number: None

PATIENT
  Sex: Female

DRUGS (1)
  1. FORTEO [Suspect]
     Active Substance: TERIPARATIDE
     Indication: PRODUCT USED FOR UNKNOWN INDICATION
     Dosage: 20MCG DAILY SQ
     Route: 058
     Dates: start: 20170501

REACTIONS (5)
  - Blood pressure decreased [None]
  - Decreased appetite [None]
  - Balance disorder [None]
  - Feeling abnormal [None]
  - Dyspepsia [None]
